FAERS Safety Report 7829499-5 (Version None)
Quarter: 2011Q4

REPORT INFORMATION
  Report Type: 
  Country: None (occurrence: None)
  Receive Date: 20111020
  Receipt Date: 20111014
  Transmission Date: 20120403
  Serious: Yes (Death)
  Sender: FDA-Public Use
  Company Number: US-GILEAD-2011-0045509

PATIENT

DRUGS (1)
  1. LETAIRIS [Suspect]
     Indication: PULMONARY HYPERTENSION
     Dosage: 10 MG, UNK
     Route: 048
     Dates: start: 20110401, end: 20111001

REACTIONS (4)
  - CHOLECYSTITIS ACUTE [None]
  - PULMONARY ARTERIAL HYPERTENSION [None]
  - ACUTE RESPIRATORY FAILURE [None]
  - LUNG DISORDER [None]
